FAERS Safety Report 16058948 (Version 2)
Quarter: 2020Q2

REPORT INFORMATION
  Report Type: Spontaneous
  Country: GB (occurrence: GB)
  Receive Date: 20190311
  Receipt Date: 20200513
  Transmission Date: 20200713
  Serious: Yes (Hospitalization, Other)
  Sender: FDA-Public Use
  Company Number: PHHY2019GB051841

PATIENT
  Age: 78 Year
  Sex: Female
  Weight: 71.3 kg

DRUGS (6)
  1. AMITRIPTYLINE [Concomitant]
     Active Substance: AMITRIPTYLINE
     Indication: PRODUCT USED FOR UNKNOWN INDICATION
     Dosage: AT NIGHT, INCREASING TO 2 AT NIGHT AFTER A WEEK.
     Route: 065
     Dates: start: 20181214
  2. PREDNISOLONE. [Concomitant]
     Active Substance: PREDNISOLONE
     Indication: PRODUCT USED FOR UNKNOWN INDICATION
     Dosage: AS DIRECTED BY CONSULTANT. 5MG AND 1MG
     Route: 065
     Dates: start: 20181127, end: 20190214
  3. ORAMORPH [Concomitant]
     Active Substance: MORPHINE SULFATE
     Indication: BREAKTHROUGH PAIN
     Dosage: 10MG/5ML  EVERY 4 HOURS
     Route: 048
     Dates: start: 20181127
  4. MYCOPHENOLATE MOFETIL. [Suspect]
     Active Substance: MYCOPHENOLATE MOFETIL
     Indication: SKIN BACTERIAL INFECTION
     Dosage: 1000 MG, QD
     Route: 048
     Dates: start: 20181207
  5. ZOMORPH [Concomitant]
     Active Substance: MORPHINE SULFATE
     Indication: PRODUCT USED FOR UNKNOWN INDICATION
     Dosage: IN THE MORNING AND AT NIGHT.
     Route: 065
     Dates: start: 20181127
  6. ACICLOVIR [Concomitant]
     Active Substance: ACYCLOVIR
     Indication: PRODUCT USED FOR UNKNOWN INDICATION
     Dosage: 4000 MG, QD
     Route: 065
     Dates: start: 20181214

REACTIONS (8)
  - Cellulitis [Recovering/Resolving]
  - Syncope [Recovered/Resolved]
  - Circulatory collapse [Recovered/Resolved]
  - Osteomyelitis [Recovering/Resolving]
  - Brain abscess [Recovering/Resolving]
  - Unresponsive to stimuli [Recovered/Resolved]
  - Empyema [Recovering/Resolving]
  - Sinusitis [Recovering/Resolving]

NARRATIVE: CASE EVENT DATE: 20181223
